FAERS Safety Report 5389110-2 (Version None)
Quarter: 2007Q3

REPORT INFORMATION
  Report Type: 
  Country: None (occurrence: None)
  Receive Date: 20070717
  Receipt Date: 20070503
  Transmission Date: 20080115
  Serious: Yes (Other)
  Sender: FDA-Public Use
  Company Number: NO-US FDA-E2B_00000003

PATIENT
  Sex: Female

DRUGS (2)
  1. CARBOCAIN [Suspect]
     Indication: INFILTRATION ANAESTHESIA
     Dosage: UNCERTAIN, STATED 0,15 (MG/ML?) AND THEN 40 ML
     Route: 051
     Dates: start: 20070423, end: 20070423
  2. KLORHEXIDINSPRIT FRESENIUS KABI [Concomitant]
     Dosage: 30 MIN BEFORE REACTION
     Route: 061
     Dates: start: 20070423, end: 20070423

REACTIONS (1)
  - ANAPHYLACTIC SHOCK [None]
